FAERS Safety Report 4286096-9 (Version None)
Quarter: 2004Q1

REPORT INFORMATION
  Report Type: 
  Country: None (occurrence: None)
  Receive Date: 20040120
  Receipt Date: 20030723
  Transmission Date: 20041129
  Serious: Yes (Life-Threatening)
  Sender: FDA-Public Use
  Company Number: ENZ-ABE-125

PATIENT
  Sex: Male
  Weight: 73 kg

DRUGS (1)
  1. ABELCET [Suspect]
     Indication: FUNGAL INFECTION
     Dosage: 2.5 MG/KG DAILY IV
     Route: 042
     Dates: start: 20030718, end: 20030718

REACTIONS (5)
  - BRONCHOSPASM [None]
  - CHILLS [None]
  - DYSPNOEA [None]
  - HYPERHIDROSIS [None]
  - PYREXIA [None]
